FAERS Safety Report 6683090-5 (Version None)
Quarter: 2010Q2

REPORT INFORMATION
  Report Type: 
  Country: None (occurrence: None)
  Receive Date: 20100415
  Receipt Date: 20100412
  Transmission Date: 20101027
  Serious: Yes (Hospitalization, Other)
  Sender: FDA-Public Use
  Company Number: PHEH2010US03304

PATIENT
  Sex: Female

DRUGS (4)
  1. FEMARA [Suspect]
     Indication: BREAST CANCER
     Dosage: 2.5 MG, QD
     Route: 048
     Dates: start: 20080401
  2. SYNTHROID [Concomitant]
     Indication: HYPOTHYROIDISM
     Dosage: 0.035 MG DAILY
  3. OXYCODONE [Concomitant]
     Indication: PAIN
     Dosage: 5 MG, Q4H
     Route: 048
     Dates: start: 20080401
  4. ANTIHYPERTENSIVES [Concomitant]

REACTIONS (6)
  - CHEST PAIN [None]
  - CORONARY ARTERIAL STENT INSERTION [None]
  - ELECTROCARDIOGRAM ST SEGMENT ELEVATION [None]
  - HYPOKINESIA [None]
  - MYOCARDIAL INFARCTION [None]
  - PERICARDIAL EFFUSION [None]
